FAERS Safety Report 26187704 (Version 1)
Quarter: 2025Q4

REPORT INFORMATION
  Report Type: Spontaneous
  Country: US (occurrence: None)
  Receive Date: 20251222
  Receipt Date: 20251222
  Transmission Date: 20260117
  Serious: Yes (Life-Threatening, Hospitalization)
  Sender: FDA-CTU
  Company Number: None

PATIENT
  Age: 80 Year
  Sex: Female
  Weight: 72.12 kg

DRUGS (15)
  1. LEVOFLOXACIN [Suspect]
     Active Substance: LEVOFLOXACIN
     Dates: start: 20250428, end: 20250505
  2. TUMS [Concomitant]
     Active Substance: CALCIUM CARBONATE
  3. VITAMIN D NOS [Concomitant]
     Active Substance: CHOLECALCIFEROL\ERGOCALCIFEROL
  4. MAGNESIUM [Concomitant]
     Active Substance: MAGNESIUM
  5. ZINC [Concomitant]
     Active Substance: ZINC
  6. LUTEIN [Concomitant]
     Active Substance: LUTEIN
  7. SAFFRON [Concomitant]
     Active Substance: SAFFRON
  8. COPPER [Concomitant]
     Active Substance: COPPER
  9. DIETARY SUPPLEMENT\RESVERATROL [Concomitant]
     Active Substance: DIETARY SUPPLEMENT\RESVERATROL
  10. CURCUMIN [Concomitant]
     Active Substance: CURCUMIN
  11. Lactaip [Concomitant]
  12. SACCHAROMYCES CEREVISIAE [Concomitant]
     Active Substance: SACCHAROMYCES CEREVISIAE
  13. OMEPRAZOLE [Concomitant]
     Active Substance: OMEPRAZOLE
  14. LOSARTAN [Concomitant]
     Active Substance: LOSARTAN
  15. CHLORTHALIDONE [Concomitant]
     Active Substance: CHLORTHALIDONE

REACTIONS (3)
  - Blood calcium increased [None]
  - Acute kidney injury [None]
  - Tendon rupture [None]

NARRATIVE: CASE EVENT DATE: 20250502
